FAERS Safety Report 8768234 (Version 1)
Quarter: 2012Q4

REPORT INFORMATION
  Report Type: Report from Study
  Country: AU (occurrence: AU)
  Receive Date: 20120905
  Receipt Date: 20120905
  Transmission Date: 20130627
  Serious: Yes (Other)
  Sender: FDA-Public Use
  Company Number: AU-GLAXOSMITHKLINE-B0827378A

PATIENT
  Age: 64 Year
  Sex: Male

DRUGS (3)
  1. PAZOPANIB [Suspect]
     Indication: RENAL CELL CARCINOMA
     Dosage: 800MG Per day
     Route: 048
  2. DEXAMETHASONE [Concomitant]
     Indication: BRAIN OEDEMA
     Dosage: 2MG per day
  3. METOCLOPRAMIDE [Concomitant]
     Indication: NAUSEA
     Dosage: 10MG per day

REACTIONS (1)
  - Disease progression [Unknown]
